FAERS Safety Report 5483525-X (Version None)
Quarter: 2007Q4

REPORT INFORMATION
  Report Type: 
  Country: None (occurrence: None)
  Receive Date: 20071009
  Receipt Date: 20070731
  Transmission Date: 20080405
  Serious: No
  Sender: FDA-Public Use
  Company Number: US020853

PATIENT
  Age: 48 Year
  Sex: Female
  Weight: 80.7403 kg

DRUGS (4)
  1. FENTORA [Suspect]
     Indication: BACK PAIN
     Dosage: 400 UG UP TO FIVE TIMES DAILY BUCCAL
     Route: 002
     Dates: start: 20070201, end: 20070301
  2. FENTORA [Suspect]
     Indication: MIGRAINE
     Dosage: 400 UG UP TO FIVE TIMES DAILY BUCCAL
     Route: 002
     Dates: start: 20070201, end: 20070301
  3. FENTORA [Suspect]
     Indication: BACK PAIN
     Dosage: 600 UG BUCCAL
     Route: 002
     Dates: start: 20070301
  4. FENTORA [Suspect]
     Indication: MIGRAINE
     Dosage: 600 UG BUCCAL
     Route: 002
     Dates: start: 20070301

REACTIONS (9)
  - APPLICATION SITE PAIN [None]
  - APPLICATION SITE ULCER [None]
  - GINGIVAL ULCERATION [None]
  - INCORRECT DOSE ADMINISTERED [None]
  - MEDICATION ERROR [None]
  - MOUTH ULCERATION [None]
  - SOMNOLENCE [None]
  - TONGUE HAEMORRHAGE [None]
  - TONGUE ULCERATION [None]
